FAERS Safety Report 23742338 (Version 2)
Quarter: 2024Q2

REPORT INFORMATION
  Report Type: Spontaneous
  Country: US (occurrence: US)
  Receive Date: 20240415
  Receipt Date: 20240422
  Transmission Date: 20240716
  Serious: No
  Sender: FDA-Public Use
  Company Number: US-PFIZER INC-202400084454

PATIENT
  Age: 64 Year
  Sex: Female
  Weight: 129.27 kg

DRUGS (3)
  1. PREMARIN [Suspect]
     Active Substance: ESTROGENS, CONJUGATED
     Indication: Atrophic vulvovaginitis
     Dosage: DAILY FOR 3 WKS ON AND 1 WEEK OFF/1 G, 21 D AND 7 D OFF/INTRA VAGINALLY EVERY NIGHT AT BEDTIME
     Route: 067
     Dates: start: 2024
  2. PREMARIN [Suspect]
     Active Substance: ESTROGENS, CONJUGATED
     Indication: Vaginal infection
  3. PREMARIN [Suspect]
     Active Substance: ESTROGENS, CONJUGATED
     Indication: Atopy

REACTIONS (11)
  - Skin irritation [Unknown]
  - Anal erythema [Unknown]
  - Cognitive disorder [Not Recovered/Not Resolved]
  - Mental disorder [Unknown]
  - Mood altered [Unknown]
  - Brain fog [Unknown]
  - Screaming [Unknown]
  - Emotional disorder [Unknown]
  - Crying [Unknown]
  - Frustration tolerance decreased [Unknown]
  - Feeling abnormal [Unknown]

NARRATIVE: CASE EVENT DATE: 20240101
